FAERS Safety Report 13080204 (Version 1)
Quarter: 2017Q1

REPORT INFORMATION
  Report Type: Spontaneous
  Country: FR (occurrence: FR)
  Receive Date: 20170103
  Receipt Date: 20170103
  Transmission Date: 20170428
  Serious: Yes (Congenital Anomaly)
  Sender: FDA-Public Use
  Company Number: PHHY2016FR180721

PATIENT
  Age: 0 Day
  Sex: Male

DRUGS (2)
  1. NEURONTIN [Suspect]
     Active Substance: GABAPENTIN
     Indication: FOETAL EXPOSURE DURING PREGNANCY
     Dosage: MOTHER DOSE 800 MG, BID
     Route: 064
  2. TEGRETOL [Suspect]
     Active Substance: CARBAMAZEPINE
     Indication: EPILEPSY
     Dosage: MOTHER DOSE 400 MG, BID
     Route: 064

REACTIONS (4)
  - Apgar score low [Recovered/Resolved]
  - Dyspnoea [Recovered/Resolved]
  - Pectus excavatum [Recovering/Resolving]
  - Laryngomalacia [Not Recovered/Not Resolved]

NARRATIVE: CASE EVENT DATE: 20030706
